FAERS Safety Report 5579722-5 (Version None)
Quarter: 2008Q1

REPORT INFORMATION
  Report Type: 
  Country: None (occurrence: None)
  Receive Date: 20080102
  Receipt Date: 20071228
  Transmission Date: 20080703
  Serious: Yes (Other)
  Sender: FDA-Public Use
  Company Number: AT-BOEHRINGER INGELHEIM PHARMACEUTICALS, INC.-2004-DE-05597DE

PATIENT
  Age: 73 Year
  Sex: Male

DRUGS (6)
  1. PRAMIPEXOLE DIHYDROCHLORIDE [Suspect]
     Route: 048
     Dates: start: 19950111
  2. THYREX SANABO [Concomitant]
     Route: 048
     Dates: start: 19940701
  3. SORMODREN [Concomitant]
     Route: 048
  4. SORBIDILAT [Concomitant]
     Route: 048
     Dates: start: 19940101
  5. LEXOTANIL [Concomitant]
  6. SINEMET [Concomitant]

REACTIONS (6)
  - ANXIETY [None]
  - ASTHENIA [None]
  - CEREBRAL ATROPHY [None]
  - CONSTIPATION [None]
  - CORONARY ARTERY DISEASE [None]
  - DEPRESSION [None]
